FAERS Safety Report 11700528 (Version 1)
Quarter: 2015Q4

REPORT INFORMATION
  Report Type: Spontaneous
  Country: GB (occurrence: GB)
  Receive Date: 20151105
  Receipt Date: 20151105
  Transmission Date: 20160304
  Serious: Yes (Other)
  Sender: FDA-Public Use
  Company Number: GB-WATSON-2015-23635

PATIENT
  Age: 14 Year
  Sex: Female

DRUGS (1)
  1. RISPERIDONE (UNKNOWN) [Suspect]
     Active Substance: RISPERIDONE
     Indication: PERSONALITY DISORDER
     Dosage: UNK (START DATE UNKNOWN.)
     Route: 048
     Dates: end: 20150918

REACTIONS (2)
  - Amenorrhoea [Recovered/Resolved]
  - Hyperprolactinaemia [Recovered/Resolved]
